FAERS Safety Report 21812580 (Version 7)
Quarter: 2023Q2

REPORT INFORMATION
  Report Type: Spontaneous
  Country: US (occurrence: US)
  Receive Date: 20230103
  Receipt Date: 20230413
  Transmission Date: 20230721
  Serious: No
  Sender: FDA-Public Use
  Company Number: US-Blueprint Medicines Corporation-SP-US-2022-003468

PATIENT
  Age: 71 Year
  Sex: Male

DRUGS (3)
  1. AYVAKIT [Suspect]
     Active Substance: AVAPRITINIB
     Indication: Systemic mastocytosis
     Route: 048
     Dates: start: 20221108
  2. AYVAKIT [Suspect]
     Active Substance: AVAPRITINIB
     Route: 048
     Dates: start: 20221108
  3. AYVAKIT [Suspect]
     Active Substance: AVAPRITINIB
     Route: 048
     Dates: start: 20221108

REACTIONS (12)
  - Dehydration [Not Recovered/Not Resolved]
  - Brain fog [Not Recovered/Not Resolved]
  - Gastrointestinal disorder [Not Recovered/Not Resolved]
  - Eye swelling [Not Recovered/Not Resolved]
  - Depressed mood [Not Recovered/Not Resolved]
  - Swelling face [Not Recovered/Not Resolved]
  - Fatigue [Not Recovered/Not Resolved]
  - Lacrimation increased [Not Recovered/Not Resolved]
  - Speech disorder [Not Recovered/Not Resolved]
  - Cognitive disorder [Not Recovered/Not Resolved]
  - Lethargy [Not Recovered/Not Resolved]
  - Aphasia [Not Recovered/Not Resolved]

NARRATIVE: CASE EVENT DATE: 20221108
